FAERS Safety Report 17284215 (Version 1)
Quarter: 2020Q1

REPORT INFORMATION
  Report Type: Report from Study
  Country: US (occurrence: US)
  Receive Date: 20200117
  Receipt Date: 20200117
  Transmission Date: 20200409
  Serious: Yes (Other)
  Sender: FDA-Public Use
  Company Number: US-BAYER-2020-006772

PATIENT

DRUGS (2)
  1. CLOPIDOGREL [Suspect]
     Active Substance: CLOPIDOGREL BISULFATE
     Dosage: 300 MG
  2. ASPIRIN. [Suspect]
     Active Substance: ASPIRIN
     Dosage: 325 MG

REACTIONS (2)
  - Puncture site haemorrhage [None]
  - Drug interaction [None]
